FAERS Safety Report 15547515 (Version 2)
Quarter: 2020Q3

REPORT INFORMATION
  Report Type: Report from Study
  Country: FR (occurrence: FR)
  Receive Date: 20181024
  Receipt Date: 20181130
  Transmission Date: 20201104
  Serious: Yes (Other)
  Sender: FDA-Public Use
  Company Number: FR-PFIZER INC-2018405055

PATIENT
  Age: 58 Year
  Sex: Female
  Weight: 53 kg

DRUGS (1)
  1. TALAZOPARIB. [Suspect]
     Active Substance: TALAZOPARIB
     Indication: BREAST CANCER
     Dosage: 1 MG, DAILY
     Dates: start: 20180727

REACTIONS (8)
  - Lymphadenopathy [Unknown]
  - Paronychia [Unknown]
  - Lymphangitis [Recovering/Resolving]
  - Subclavian vein thrombosis [Unknown]
  - Pyrexia [Unknown]
  - Chest pain [Unknown]
  - Infection [Unknown]
  - Oedema [Unknown]

NARRATIVE: CASE EVENT DATE: 20180915
